FAERS Safety Report 18240353 (Version 1)
Quarter: 2020Q3

REPORT INFORMATION
  Report Type: Report from Study
  Country: US (occurrence: US)
  Receive Date: 20200908
  Receipt Date: 20200908
  Transmission Date: 20201103
  Serious: Yes (Death)
  Sender: FDA-Public Use
  Company Number: US-VIFOR (INTERNATIONAL) INC.-VIT-2020-09176

PATIENT
  Sex: Female

DRUGS (1)
  1. VELPHORO [Suspect]
     Active Substance: SUCROFERRIC OXYHYDROXIDE
     Indication: END STAGE RENAL DISEASE
     Dosage: 90 TABLETS PER 30 DAYS
     Route: 048
     Dates: start: 20190906, end: 20200117

REACTIONS (1)
  - Death [Fatal]

NARRATIVE: CASE EVENT DATE: 20200117
